FAERS Safety Report 13896839 (Version 1)
Quarter: 2017Q3

REPORT INFORMATION
  Report Type: Spontaneous
  Country: IR (occurrence: IR)
  Receive Date: 20170823
  Receipt Date: 20170823
  Transmission Date: 20171127
  Serious: Yes (Other)
  Sender: FDA-Public Use
  Company Number: IR-EDENBRIDGE PHARMACEUTICALS, LLC-IR-2017EDE000150

PATIENT
  Age: 36 Year
  Sex: Male

DRUGS (18)
  1. PREDNISOLONE SODIUM PHOSPHATE. [Suspect]
     Active Substance: PREDNISOLONE SODIUM PHOSPHATE
     Dosage: 100 MG, QD
     Dates: start: 201402, end: 201404
  2. PREDNISOLONE SODIUM PHOSPHATE. [Suspect]
     Active Substance: PREDNISOLONE SODIUM PHOSPHATE
     Dosage: 45 MG, QD
     Dates: start: 201405, end: 201406
  3. PREDNISOLONE SODIUM PHOSPHATE. [Suspect]
     Active Substance: PREDNISOLONE SODIUM PHOSPHATE
     Dosage: 30 MG, QD
     Dates: start: 201410, end: 201501
  4. PREDNISOLONE SODIUM PHOSPHATE. [Suspect]
     Active Substance: PREDNISOLONE SODIUM PHOSPHATE
     Dosage: 25 MG, QD
     Dates: start: 201507, end: 201508
  5. LAMIVUDINE. [Concomitant]
     Active Substance: LAMIVUDINE
     Indication: PEMPHIGUS
     Dosage: 100 MG, UNK
     Dates: start: 201405, end: 201408
  6. PREDNISOLONE SODIUM PHOSPHATE. [Suspect]
     Active Substance: PREDNISOLONE SODIUM PHOSPHATE
     Dosage: 70 MG, QD
     Dates: start: 2014, end: 2014
  7. PREDNISOLONE SODIUM PHOSPHATE. [Suspect]
     Active Substance: PREDNISOLONE SODIUM PHOSPHATE
     Dosage: 17.5 MG, QD (PLAN TO DECREASE EVERY 2 WEEKS UNTIL 12.5)
     Dates: start: 201502, end: 201503
  8. PREDNISOLONE SODIUM PHOSPHATE. [Suspect]
     Active Substance: PREDNISOLONE SODIUM PHOSPHATE
     Dosage: 17.5 MG, QD
     Dates: start: 201504, end: 201506
  9. RITUXIMAB. [Concomitant]
     Active Substance: RITUXIMAB
     Indication: PEMPHIGUS
     Dosage: 500 MG, WEEKLY [X4 CYCLES]
     Dates: start: 201410, end: 201411
  10. PREDNISOLONE SODIUM PHOSPHATE. [Suspect]
     Active Substance: PREDNISOLONE SODIUM PHOSPHATE
     Indication: PEMPHIGUS
     Dosage: 15 MG, QD
     Dates: start: 201401, end: 2014
  11. ADEFOVIR [Concomitant]
     Active Substance: ADEFOVIR
     Indication: PEMPHIGUS
     Dosage: 10 MG, UNK
     Dates: start: 201408, end: 201508
  12. CELLCEPT [Concomitant]
     Active Substance: MYCOPHENOLATE MOFETIL\MYCOPHENOLATE MOFETIL HYDROCHLORIDE
     Indication: PEMPHIGUS
     Dosage: 1.5 G, QD
     Dates: start: 201407, end: 2014
  13. IMMUNOGLOBULIN                     /00025201/ [Concomitant]
     Active Substance: HUMAN IMMUNOGLOBULIN G
     Indication: PEMPHIGUS
     Dosage: 130 G, UNK
     Route: 042
  14. CELLCEPT [Concomitant]
     Active Substance: MYCOPHENOLATE MOFETIL\MYCOPHENOLATE MOFETIL HYDROCHLORIDE
     Dosage: 2 G, QD
     Dates: start: 2014, end: 201410
  15. RITUXIMAB. [Concomitant]
     Active Substance: RITUXIMAB
     Dosage: 500 MG, WEEKLY [X1 CYCLE]
     Dates: start: 201506, end: 201506
  16. PREDNISOLONE SODIUM PHOSPHATE. [Suspect]
     Active Substance: PREDNISOLONE SODIUM PHOSPHATE
     Dosage: 50 MG, QD
     Dates: start: 201407, end: 201410
  17. PREDNISOLONE SODIUM PHOSPHATE. [Suspect]
     Active Substance: PREDNISOLONE SODIUM PHOSPHATE
     Dosage: 25 MG, QD
     Dates: start: 201501, end: 201502
  18. RITUXIMAB. [Concomitant]
     Active Substance: RITUXIMAB
     Dosage: 500 MG, WEEKLY [X3 CYCLES]
     Dates: start: 201507, end: 201508

REACTIONS (1)
  - Hepatitis B reactivation [Recovering/Resolving]

NARRATIVE: CASE EVENT DATE: 201503
